FAERS Safety Report 21119583 (Version 1)
Quarter: 2022Q3

REPORT INFORMATION
  Report Type: Spontaneous
  Country: US (occurrence: US)
  Receive Date: 20220722
  Receipt Date: 20220722
  Transmission Date: 20221026
  Serious: Yes (Hospitalization)
  Sender: FDA-Public Use
  Company Number: US-SLATE RUN PHARMACEUTICALS-22US001209

PATIENT

DRUGS (10)
  1. AZITHROMYCIN [Suspect]
     Active Substance: AZITHROMYCIN
     Indication: Maternal exposure during pregnancy
     Dosage: UNK
     Dates: start: 2020, end: 2020
  2. EPOPROSTENOL [Concomitant]
     Active Substance: EPOPROSTENOL
     Indication: Maternal exposure during pregnancy
     Dosage: UNK
     Route: 055
     Dates: start: 2020
  3. HYDROXYCHLOROQUINE [Concomitant]
     Active Substance: HYDROXYCHLOROQUINE
     Indication: Maternal exposure during pregnancy
     Dosage: UNK
     Dates: start: 2020
  4. TOCILIZUMAB [Concomitant]
     Active Substance: TOCILIZUMAB
     Indication: Maternal exposure during pregnancy
     Dosage: UNK
     Dates: start: 2020
  5. COVID-19 CONVALESCENT PLASMA [Concomitant]
     Active Substance: COVID-19 CONVALESCENT PLASMA
     Indication: Maternal exposure during pregnancy
     Dosage: UNK
     Dates: start: 2020
  6. REMDESIVIR [Concomitant]
     Active Substance: REMDESIVIR
     Indication: Maternal exposure during pregnancy
     Dosage: UNK
     Dates: start: 2020
  7. UNSPECIFIED INGREDIENT [Concomitant]
     Active Substance: UNSPECIFIED INGREDIENT
     Indication: COVID-19
     Dosage: UNK
     Dates: start: 2020
  8. HEPARIN [Concomitant]
     Active Substance: HEPARIN SODIUM
     Indication: Maternal exposure during pregnancy
     Dosage: UNK
     Dates: start: 2020
  9. BIVALIRUDIN [Concomitant]
     Active Substance: BIVALIRUDIN
     Indication: Maternal exposure during pregnancy
     Dosage: UNK
     Dates: start: 2020
  10. UNSPECIFIED INGREDIENT [Concomitant]
     Active Substance: UNSPECIFIED INGREDIENT
     Indication: Maternal exposure during pregnancy
     Dosage: UNK
     Dates: start: 2020

REACTIONS (3)
  - Premature baby [Unknown]
  - Apgar score low [Recovering/Resolving]
  - Foetal exposure during pregnancy [Recovered/Resolved]

NARRATIVE: CASE EVENT DATE: 20200101
